FAERS Safety Report 9858714 (Version 1)
Quarter: 2014Q1

REPORT INFORMATION
  Report Type: Spontaneous
  Country: IT (occurrence: IT)
  Receive Date: 20140131
  Receipt Date: 20140131
  Transmission Date: 20141002
  Serious: Yes (Hospitalization)
  Sender: FDA-Public Use
  Company Number: IT-SA-2014SA009441

PATIENT
  Age: 74 Year
  Sex: Male

DRUGS (4)
  1. KARVEZIDE [Suspect]
     Indication: HYPERTENSION
     Route: 048
     Dates: start: 20131208, end: 20131208
  2. ACETYLSALICYLIC ACID [Concomitant]
  3. NEBILOX [Concomitant]
     Dosage: STRENGTH: 5 MG
  4. CRESTOR [Concomitant]

REACTIONS (3)
  - Hyponatraemia [Recovering/Resolving]
  - Asthenia [Recovering/Resolving]
  - Urticaria [Recovering/Resolving]
